FAERS Safety Report 7128861-6 (Version None)
Quarter: 2010Q4

REPORT INFORMATION
  Report Type: 
  Country: None (occurrence: None)
  Receive Date: 20101130
  Receipt Date: 20101117
  Transmission Date: 20110411
  Serious: Yes (Hospitalization)
  Sender: FDA-Public Use
  Company Number: A0798495A

PATIENT
  Age: 37 Year
  Sex: Female
  Weight: 102.7 kg

DRUGS (7)
  1. AVANDIA [Suspect]
     Dosage: 4MG TWICE PER DAY
     Route: 048
     Dates: start: 20020326, end: 20050926
  2. AVANDAMET [Suspect]
     Route: 048
     Dates: start: 20040127, end: 20051010
  3. LIPITOR [Concomitant]
  4. TOPROL-XL [Concomitant]
  5. GLUCOPHAGE [Concomitant]
  6. PREVACID [Concomitant]
  7. INSULIN [Concomitant]

REACTIONS (4)
  - CARDIAC FAILURE CONGESTIVE [None]
  - CORONARY ARTERY BYPASS [None]
  - HYPERLIPIDAEMIA [None]
  - MYOCARDIAL INFARCTION [None]
